FAERS Safety Report 8240254-7 (Version None)
Quarter: 2012Q1

REPORT INFORMATION
  Report Type: 
  Country: None (occurrence: None)
  Receive Date: 20120328
  Receipt Date: 20120322
  Transmission Date: 20120608
  Serious: Yes (Other)
  Sender: FDA-Public Use
  Company Number: US-JNJFOC-20111009585

PATIENT
  Sex: Male
  Weight: 99.79 kg

DRUGS (4)
  1. KETOCONAZOLE [Suspect]
     Indication: PROSTATE CANCER
     Route: 048
     Dates: start: 20110101
  2. LISINOPRIL [Concomitant]
     Indication: BLOOD PRESSURE
     Route: 048
  3. HYDROCORTISONE [Concomitant]
     Indication: PROSTATE CANCER
     Route: 048
  4. WARFARIN SODIUM [Concomitant]
     Indication: PRODUCT USED FOR UNKNOWN INDICATION
     Route: 048

REACTIONS (4)
  - OFF LABEL USE [None]
  - RHINORRHOEA [None]
  - NASAL CONGESTION [None]
  - PROSTATIC SPECIFIC ANTIGEN INCREASED [None]
